FAERS Safety Report 4562667-7 (Version None)
Quarter: 2005Q1

REPORT INFORMATION
  Report Type: 
  Country: None (occurrence: None)
  Receive Date: 20050124
  Receipt Date: 20050117
  Transmission Date: 20050727
  Serious: Yes (Other)
  Sender: FDA-Public Use
  Company Number: 2005013841

PATIENT
  Age: 35 Year
  Sex: Female
  Weight: 65 kg

DRUGS (3)
  1. ZARATOR (ATORVASTATIN) [Suspect]
     Indication: DYSLIPIDAEMIA
     Dosage: 10 MG (10 MG, 1 IN 1 D), ORAL
     Route: 048
     Dates: start: 20041030, end: 20041112
  2. INSULIN [Concomitant]
  3. ORAL ANTIDIABETICS (ORAL ANTIDIABETICS) [Concomitant]

REACTIONS (2)
  - NEURALGIA [None]
  - TACHYCARDIA [None]
